FAERS Safety Report 6527220-4 (Version None)
Quarter: 2010Q1

REPORT INFORMATION
  Report Type: 
  Country: None (occurrence: None)
  Receive Date: 20100104
  Receipt Date: 20100104
  Transmission Date: 20100710
  Serious: No
  Sender: FDA-Public Use
  Company Number: None

PATIENT
  Age: 81 Year
  Sex: Female
  Weight: 54.4316 kg

DRUGS (1)
  1. LEVOFLOXACIN [Suspect]
     Indication: PNEUMONIA
     Dosage: ONE TABLET ONCE A DAY PO
     Route: 048
     Dates: start: 20091117, end: 20091121

REACTIONS (6)
  - DIZZINESS [None]
  - FEELING HOT [None]
  - HEART RATE IRREGULAR [None]
  - INSOMNIA [None]
  - MORBID THOUGHTS [None]
  - UNEVALUABLE EVENT [None]
